FAERS Safety Report 6110586-7 (Version None)
Quarter: 2009Q1

REPORT INFORMATION
  Report Type: 
  Country: None (occurrence: None)
  Receive Date: 20090310
  Receipt Date: 20090304
  Transmission Date: 20090719
  Serious: Yes (Hospitalization)
  Sender: FDA-Public Use
  Company Number: FR-ALLERGAN-0902127US

PATIENT
  Sex: Female

DRUGS (2)
  1. VISTABEL [Suspect]
     Indication: SKIN WRINKLING
     Dosage: UNK, SINGLE
     Dates: start: 20080901, end: 20080901
  2. BOTOX [Suspect]
     Indication: SKIN WRINKLING
     Dosage: UNK, SINGLE
     Dates: start: 20080901, end: 20080901

REACTIONS (2)
  - FACE OEDEMA [None]
  - GRANULOMA [None]
